FAERS Safety Report 8980192 (Version 1)
Quarter: 2012Q4

REPORT INFORMATION
  Report Type: 
  Country: NO (occurrence: NO)
  Receive Date: 20121221
  Receipt Date: 20121221
  Transmission Date: 20130627
  Serious: Yes (Other)
  Sender: FDA-Public Use
  Company Number: PHHY2012NO115190

PATIENT
  Age: 30 Year
  Sex: Male
  Weight: 117 kg

DRUGS (1)
  1. LEPONEX [Suspect]
     Indication: SCHIZOPHRENIA
     Dosage: 200 mg, UNK
     Dates: start: 19950101, end: 20120201

REACTIONS (2)
  - Disturbance in attention [Not Recovered/Not Resolved]
  - Lethargy [Not Recovered/Not Resolved]
